FAERS Safety Report 6068510-1 (Version None)
Quarter: 2009Q1

REPORT INFORMATION
  Report Type: 
  Country: None (occurrence: None)
  Receive Date: 20090206
  Receipt Date: 20090126
  Transmission Date: 20090719
  Serious: Yes (Death)
  Sender: FDA-Public Use
  Company Number: US-BAXTER-2008BH013627

PATIENT
  Sex: Female

DRUGS (2)
  1. DEXTROSE 5% [Suspect]
     Indication: KETOSIS
     Route: 033
     Dates: start: 20081208, end: 20081208
  2. DEXTROSE 5% [Suspect]
     Indication: OFF LABEL USE
     Route: 033
     Dates: start: 20081208, end: 20081208

REACTIONS (2)
  - EXPIRED DRUG ADMINISTERED [None]
  - SUBCUTANEOUS EMPHYSEMA [None]
